FAERS Safety Report 17529479 (Version 1)
Quarter: 2020Q1

REPORT INFORMATION
  Report Type: Spontaneous
  Country: HR (occurrence: HR)
  Receive Date: 20200311
  Receipt Date: 20200311
  Transmission Date: 20200409
  Serious: Yes (Other)
  Sender: FDA-Public Use
  Company Number: HR-JNJFOC-20200243055

PATIENT
  Age: 80 Year
  Sex: Male
  Weight: 73 kg

DRUGS (5)
  1. DOXAZIN                            /00639301/ [Concomitant]
     Indication: BENIGN PROSTATIC HYPERPLASIA
     Dosage: 4 MILLIGRAM, 1/DAY
     Route: 048
     Dates: start: 20180103
  2. ATORIS [Concomitant]
     Active Substance: ATORVASTATIN CALCIUM
     Indication: DYSLIPIDAEMIA
     Dosage: 10 MILLIGRAM, 1/DAY
     Route: 048
     Dates: start: 20180117
  3. TRAMADOL HYDROCHLORIDE. [Suspect]
     Active Substance: TRAMADOL HYDROCHLORIDE
     Indication: LIMB INJURY
     Dosage: DRUGINDICATION SHOULDER LESIONS
     Route: 048
     Dates: start: 201907, end: 201907
  4. NAPROXEN SODIUM. [Concomitant]
     Active Substance: NAPROXEN SODIUM
     Indication: LIMB INJURY
     Dosage: 1650 MILLIGRAM, 1/DAY
     Route: 048
     Dates: start: 20190717
  5. SKOPRYL PLUS [Concomitant]
     Indication: ESSENTIAL HYPERTENSION
     Dosage: 1 DOSAGE FORM, 1/DAY
     Route: 065
     Dates: start: 20180117

REACTIONS (1)
  - Asphyxia [Recovered/Resolved]

NARRATIVE: CASE EVENT DATE: 201907
